FAERS Safety Report 8538664 (Version 2)
Quarter: 2012Q4

REPORT INFORMATION
  Report Type: 
  Country: GR (occurrence: GR)
  Receive Date: 20120501
  Receipt Date: 20121030
  Transmission Date: 20130627
  Serious: Yes (Death)
  Sender: FDA-Public Use
  Company Number: GR-GLAXOSMITHKLINE-B0799024A

PATIENT
  Age: 78 Year
  Sex: Female

DRUGS (3)
  1. REVOLADE [Suspect]
     Indication: IDIOPATHIC THROMBOCYTOPENIC PURPURA
     Dosage: 50MG Per day
     Route: 065
     Dates: start: 20101129
  2. CORTICOSTEROIDS [Concomitant]
  3. GAMMA GLOBULIN [Concomitant]

REACTIONS (11)
  - Haemorrhagic cerebral infarction [Fatal]
  - Peptic ulcer haemorrhage [Unknown]
  - Thrombocytopenia [Unknown]
  - Platelet count abnormal [Unknown]
  - Lethargy [Unknown]
  - Viral infection [Unknown]
  - Headache [Unknown]
  - Somnolence [Unknown]
  - Dizziness [Unknown]
  - Balance disorder [Unknown]
  - Extrapyramidal disorder [Unknown]
